FAERS Safety Report 5059547-X (Version None)
Quarter: 2006Q3

REPORT INFORMATION
  Report Type: 
  Country: None (occurrence: None)
  Receive Date: 20060720
  Receipt Date: 20060501
  Transmission Date: 20061208
  Serious: Yes (Hospitalization)
  Sender: FDA-Public Use
  Company Number: DL2006237

PATIENT
  Age: 17 Year
  Sex: Female

DRUGS (2)
  1. MIFEPRISTONE TABLETS, 200 MG (DANCO LABS) [Suspect]
     Indication: ABORTION INDUCED
     Dosage: 200 MG, ORAL
     Route: 048
     Dates: start: 20060331
  2. MISOPROSTOL [Suspect]
     Dosage: 800 MCG, ORAL
     Route: 048
     Dates: start: 20060402

REACTIONS (3)
  - ABDOMINAL PAIN [None]
  - ENDOMETRITIS [None]
  - PYREXIA [None]
